FAERS Safety Report 10211267 (Version 1)
Quarter: 2014Q2

REPORT INFORMATION
  Report Type: Report from Study
  Country: PH (occurrence: PH)
  Receive Date: 20140602
  Receipt Date: 20140602
  Transmission Date: 20141212
  Serious: No
  Sender: FDA-Public Use
  Company Number: PHHY2014PH064460

PATIENT
  Sex: Female

DRUGS (5)
  1. TASIGNA [Suspect]
     Dosage: 800 MG, DAILY
     Route: 048
     Dates: start: 20140221, end: 20140223
  2. TASIGNA [Suspect]
     Dosage: 200 MG, DAILY
     Route: 048
     Dates: start: 201404
  3. TASIGNA [Suspect]
     Dosage: 400 MG, DAILY
     Route: 048
  4. TASIGNA [Suspect]
     Dosage: 600 MG, DAILY
     Route: 048
     Dates: end: 20140526
  5. TASIGNA [Suspect]
     Dosage: 800 MG, DAILY
     Route: 048
     Dates: start: 20140526

REACTIONS (1)
  - Dyspnoea [Unknown]
